FAERS Safety Report 13129301 (Version 2)
Quarter: 2017Q2

REPORT INFORMATION
  Report Type: Spontaneous
  Country: US (occurrence: US)
  Receive Date: 20170119
  Receipt Date: 20170601
  Transmission Date: 20170830
  Serious: Yes (Other)
  Sender: FDA-Public Use
  Company Number: US-ASTRAZENECA-2017SE03357

PATIENT
  Age: 67 Year
  Sex: Female
  Weight: 70.3 kg

DRUGS (46)
  1. NEXIUM [Suspect]
     Active Substance: ESOMEPRAZOLE MAGNESIUM
     Indication: PEPTIC ULCER
     Route: 048
     Dates: start: 200404, end: 201203
  2. NEXIUM [Suspect]
     Active Substance: ESOMEPRAZOLE MAGNESIUM
     Indication: GASTROOESOPHAGEAL REFLUX DISEASE
     Dosage: 40.0MG UNKNOWN
     Route: 048
     Dates: start: 20040413
  3. NEXIUM [Suspect]
     Active Substance: ESOMEPRAZOLE MAGNESIUM
     Indication: PROPHYLAXIS AGAINST GASTROINTESTINAL ULCER
     Dosage: 40.0MG UNKNOWN
     Route: 048
     Dates: start: 20040413
  4. GLUCOTROL XL [Concomitant]
     Active Substance: GLIPIZIDE
     Dosage: 2.5MG UNKNOWN
     Dates: start: 20040209
  5. CITALOPRAM HYDROBROMIDE. [Concomitant]
     Active Substance: CITALOPRAM HYDROBROMIDE
     Dosage: 20.0MG UNKNOWN
     Dates: start: 20070918
  6. GEMFIBROZIL. [Concomitant]
     Active Substance: GEMFIBROZIL
     Dosage: 60.0MG UNKNOWN
     Dates: start: 20080521
  7. TRILIPIX [Concomitant]
     Active Substance: FENOFIBRIC ACID
     Dosage: 135.0MG UNKNOWN
     Dates: start: 20111230
  8. ONDANSETRON HYDROCHLORIDE. [Concomitant]
     Active Substance: ONDANSETRON HYDROCHLORIDE
     Dosage: 4.0MG UNKNOWN
     Dates: start: 20151019
  9. LORTAB [Concomitant]
     Active Substance: ACETAMINOPHEN\HYDROCODONE BITARTRATE
     Dosage: 7.5MG-500 MG
     Dates: start: 20130813
  10. NEXIUM [Suspect]
     Active Substance: ESOMEPRAZOLE MAGNESIUM
     Indication: GASTROOESOPHAGEAL REFLUX DISEASE
     Dosage: 40.0MG UNKNOWN
     Route: 048
     Dates: start: 20120328
  11. NEXIUM [Suspect]
     Active Substance: ESOMEPRAZOLE MAGNESIUM
     Indication: PEPTIC ULCER
     Dosage: 40.0MG UNKNOWN
     Route: 048
     Dates: start: 20120328
  12. FUROSEMIDE. [Concomitant]
     Active Substance: FUROSEMIDE
     Dosage: 40.0MG UNKNOWN
     Dates: start: 20070206
  13. FISH OIL [Concomitant]
     Active Substance: FISH OIL
     Dosage: 1000.0MG UNKNOWN
     Dates: start: 20130813
  14. NEXIUM [Suspect]
     Active Substance: ESOMEPRAZOLE MAGNESIUM
     Indication: GASTROOESOPHAGEAL REFLUX DISEASE
     Route: 048
     Dates: start: 200404, end: 201203
  15. ALLEGRA-D [Concomitant]
     Active Substance: FEXOFENADINE\PSEUDOEPHEDRINE
     Dates: start: 20040119
  16. IBUPROFEN. [Concomitant]
     Active Substance: IBUPROFEN
     Dosage: 600.0MG UNKNOWN
     Dates: start: 20090225
  17. JANUVIA [Concomitant]
     Active Substance: SITAGLIPTIN PHOSPHATE
     Dosage: 50.0MG UNKNOWN
     Dates: start: 20110719
  18. FERROUS SULFATE. [Concomitant]
     Active Substance: FERROUS SULFATE
     Dosage: 325.0MG UNKNOWN
     Dates: start: 20130312
  19. DIOVAN [Concomitant]
     Active Substance: VALSARTAN
     Dosage: 320.0MG UNKNOWN
     Dates: start: 20130813
  20. METHADONE HYDROCHLORIDE. [Concomitant]
     Active Substance: METHADONE HYDROCHLORIDE
     Dosage: 10.0MG UNKNOWN
     Dates: start: 20040225
  21. PROCARDIA XL [Concomitant]
     Active Substance: NIFEDIPINE
     Dosage: 30.0MG UNKNOWN
     Dates: start: 20130813
  22. KETOROLAC [Concomitant]
     Active Substance: KETOROLAC\KETOROLAC TROMETHAMINE
     Dosage: 10.0MG UNKNOWN
     Dates: start: 20041115
  23. METFORMIN HYDROCHLORIDE. [Concomitant]
     Active Substance: METFORMIN HYDROCHLORIDE
     Dosage: 500.0MG UNKNOWN
     Dates: start: 20040209
  24. PROMETHAZINE [Concomitant]
     Active Substance: PROMETHAZINE\PROMETHAZINE HYDROCHLORIDE
     Dosage: 25.0MG UNKNOWN
     Dates: start: 20050422
  25. PREVACID [Concomitant]
     Active Substance: LANSOPRAZOLE
     Dosage: 30.0MG UNKNOWN
     Dates: start: 20060918
  26. SOMA [Concomitant]
     Active Substance: CARISOPRODOL
     Dates: start: 20120123
  27. KLONOPIN [Concomitant]
     Active Substance: CLONAZEPAM
     Dosage: 1.0MG UNKNOWN
     Dates: start: 20130813
  28. PSEUDOEPHEDRINE HYDROCHLORIDE. [Concomitant]
     Active Substance: PSEUDOEPHEDRINE HYDROCHLORIDE
     Dosage: 30.0MG UNKNOWN
     Dates: start: 20040105
  29. LIPITOR [Concomitant]
     Active Substance: ATORVASTATIN CALCIUM
     Dosage: 20.0MG UNKNOWN
     Dates: start: 20040223
  30. MOBIC [Concomitant]
     Active Substance: MELOXICAM
     Dosage: 7.5MG UNKNOWN
     Dates: start: 20040422
  31. LEVAQUIN [Concomitant]
     Active Substance: LEVOFLOXACIN
     Dosage: 500.0MG UNKNOWN
     Dates: start: 20040511
  32. ATENOLOL. [Concomitant]
     Active Substance: ATENOLOL
     Dosage: 25.0MG UNKNOWN
     Dates: start: 20041108
  33. BIAXIN [Concomitant]
     Active Substance: CLARITHROMYCIN
     Dosage: 500.0MG UNKNOWN
     Dates: start: 20060914
  34. SINGULAIR [Concomitant]
     Active Substance: MONTELUKAST SODIUM
     Dosage: 10.0MG UNKNOWN
     Dates: start: 20080521
  35. SIMVASTATIN. [Concomitant]
     Active Substance: SIMVASTATIN
     Dosage: 40.0MG UNKNOWN
     Dates: start: 20081021
  36. LEVOTHYROXINE. [Concomitant]
     Active Substance: LEVOTHYROXINE
     Dosage: 50.0UG UNKNOWN
     Dates: start: 20110316
  37. ACTOS [Concomitant]
     Active Substance: PIOGLITAZONE HYDROCHLORIDE
     Dosage: 15.0UG UNKNOWN
     Dates: start: 20110330
  38. ALENDRONATE SODIUM. [Concomitant]
     Active Substance: ALENDRONATE SODIUM
     Dosage: 70.0MG UNKNOWN
     Dates: start: 20160401
  39. NEXIUM [Suspect]
     Active Substance: ESOMEPRAZOLE MAGNESIUM
     Indication: PROPHYLAXIS AGAINST GASTROINTESTINAL ULCER
     Route: 048
     Dates: start: 200404, end: 201203
  40. NEXIUM [Suspect]
     Active Substance: ESOMEPRAZOLE MAGNESIUM
     Indication: PEPTIC ULCER
     Dosage: 40.0MG UNKNOWN
     Route: 048
     Dates: start: 20040413
  41. NEXIUM [Suspect]
     Active Substance: ESOMEPRAZOLE MAGNESIUM
     Indication: PROPHYLAXIS AGAINST GASTROINTESTINAL ULCER
     Dosage: 40.0MG UNKNOWN
     Route: 048
     Dates: start: 20120328
  42. DIAZEPAM. [Concomitant]
     Active Substance: DIAZEPAM
     Dosage: 5.0MG UNKNOWN
     Dates: start: 20040612
  43. TOPAMAX [Concomitant]
     Active Substance: TOPIRAMATE
     Dosage: 25.0MG UNKNOWN
     Dates: start: 20060918
  44. PAROXETINE HCL [Concomitant]
     Active Substance: PAROXETINE HYDROCHLORIDE
     Dosage: 20.0MG UNKNOWN
     Dates: start: 20061030
  45. GLYBURIDE. [Concomitant]
     Active Substance: GLYBURIDE
     Dosage: 5.0MG UNKNOWN
     Dates: start: 20081126
  46. ZEMPLAR [Concomitant]
     Active Substance: PARICALCITOL
     Dosage: 1.0UG UNKNOWN
     Dates: start: 20111230

REACTIONS (3)
  - End stage renal disease [Unknown]
  - Chronic kidney disease [Unknown]
  - Acute kidney injury [Unknown]

NARRATIVE: CASE EVENT DATE: 20120123
